FAERS Safety Report 15314354 (Version 1)
Quarter: 2018Q3

REPORT INFORMATION
  Report Type: Spontaneous
  Country: GB (occurrence: GB)
  Receive Date: 20180824
  Receipt Date: 20180824
  Transmission Date: 20181010
  Serious: Yes (Life-Threatening)
  Sender: FDA-Public Use
  Company Number: GB-TEVA-2018-GB-948245

PATIENT
  Age: 38 Year
  Sex: Female

DRUGS (2)
  1. QUETIAPINE. [Suspect]
     Active Substance: QUETIAPINE
     Indication: OVERDOSE
     Route: 048
  2. ADRENALINE [Suspect]
     Active Substance: EPINEPHRINE
     Indication: HYPOTENSION
     Dosage: NUMEROUS IV BOLUSES
     Route: 040

REACTIONS (8)
  - Coma scale abnormal [Unknown]
  - Toxicity to various agents [Unknown]
  - Drug ineffective [Unknown]
  - Tachyarrhythmia [Recovering/Resolving]
  - Overdose [Unknown]
  - Generalised tonic-clonic seizure [Unknown]
  - Torsade de pointes [Recovering/Resolving]
  - Hypotension [Recovering/Resolving]
